FAERS Safety Report 9353520 (Version 1)
Quarter: 2013Q2

REPORT INFORMATION
  Report Type: Spontaneous
  Country: BR (occurrence: BR)
  Receive Date: 20130618
  Receipt Date: 20130618
  Transmission Date: 20140414
  Serious: Yes (Other)
  Sender: FDA-Public Use
  Company Number: BR-SANOFI-AVENTIS-2013SA059331

PATIENT
  Age: 73 Year
  Sex: Male
  Weight: 77 kg

DRUGS (24)
  1. LANTUS [Suspect]
     Indication: TYPE 2 DIABETES MELLITUS
     Route: 058
     Dates: start: 2008
  2. APIDRA [Suspect]
     Indication: TYPE 2 DIABETES MELLITUS
     Dosage: DOSE ACCORDING TO GLYCEMIA
     Route: 058
     Dates: start: 2010
  3. CLIKSTAR [Concomitant]
     Indication: DEVICE THERAPY
     Dates: start: 2008
  4. CLIKSTAR [Concomitant]
     Indication: DEVICE THERAPY
     Dates: start: 2010
  5. OMEGA 3 [Concomitant]
     Indication: PERIPHERAL VASCULAR DISORDER
     Route: 048
  6. CRESTOR [Concomitant]
     Indication: BLOOD CHOLESTEROL
     Route: 048
  7. OTHER ANTI-ASTHMATICS, INHALANTS [Concomitant]
     Indication: CHRONIC OBSTRUCTIVE PULMONARY DISEASE
  8. DUOVENT [Concomitant]
     Indication: CHRONIC OBSTRUCTIVE PULMONARY DISEASE
  9. BUDESONIDE/FORMOTEROL FUMARATE [Concomitant]
     Indication: CHRONIC OBSTRUCTIVE PULMONARY DISEASE
  10. BAMIFIX [Concomitant]
     Indication: CHRONIC OBSTRUCTIVE PULMONARY DISEASE
  11. DOMPERIDONE [Concomitant]
     Indication: ABDOMINAL DISCOMFORT
     Route: 048
  12. OMEPRAZOLE [Concomitant]
     Indication: ABDOMINAL DISCOMFORT
     Route: 048
  13. PRADAXA [Concomitant]
     Indication: HYPERTENSION
     Route: 048
  14. AMIODARONE [Concomitant]
     Indication: HYPERTENSION
     Route: 048
  15. ALDACTONE [Concomitant]
     Indication: HYPERTENSION
     Route: 048
  16. FUROSEMIDE [Concomitant]
     Indication: HYPERTENSION
     Route: 048
  17. SOMALGIN CARDIO [Concomitant]
     Indication: HYPERTENSION
     Route: 048
  18. DIOVANE [Concomitant]
     Indication: HYPERTENSION
     Route: 048
  19. GINKGO BILOBA [Concomitant]
     Indication: NERVOUS SYSTEM DISORDER
     Route: 048
  20. HIDANTAL [Concomitant]
     Indication: NERVOUS SYSTEM DISORDER
     Route: 048
  21. OLCADIL [Concomitant]
     Indication: NERVOUS SYSTEM DISORDER
     Route: 048
  22. SERTRALINE [Concomitant]
     Indication: NERVOUS SYSTEM DISORDER
     Route: 048
  23. ONGLYZA [Concomitant]
     Indication: TYPE 2 DIABETES MELLITUS
     Route: 048
  24. GABAPENTIN [Concomitant]
     Indication: NERVOUS SYSTEM DISORDER
     Route: 048

REACTIONS (4)
  - Cerebrovascular accident [Recovered/Resolved]
  - Speech disorder [Recovered/Resolved]
  - Dysphagia [Recovered/Resolved]
  - Injection site haematoma [Recovered/Resolved]
